FAERS Safety Report 9056013 (Version 3)
Quarter: 2017Q4

REPORT INFORMATION
  Report Type: Spontaneous
  Country: US (occurrence: US)
  Receive Date: 20130205
  Receipt Date: 20171006
  Transmission Date: 20180321
  Serious: Yes (Death, Other)
  Sender: FDA-Public Use
  Company Number: US-JNJFOC-20130200051

PATIENT

DRUGS (5)
  1. BRENTUXIMAB VEDOTIN [Suspect]
     Active Substance: BRENTUXIMAB VEDOTIN
     Indication: HODGKIN^S DISEASE
     Route: 065
  2. DACARBAZINE. [Suspect]
     Active Substance: DACARBAZINE
     Indication: HODGKIN^S DISEASE
     Dosage: DAYS 1 AND 15 OF EACH 28 DAY CYCLE FOR UPTO 6 CYCLES OF THERAPY
     Route: 065
  3. BLEOMYCIN [Suspect]
     Active Substance: BLEOMYCIN SULFATE
     Indication: HODGKIN^S DISEASE
     Dosage: DAYS 1 AND 15 OF EACH 28 DAY CYCLE FOR UPTO 6 CYCLES OF THERAPY
     Route: 065
  4. DOXORUBICIN [Suspect]
     Active Substance: DOXORUBICIN
     Indication: HODGKIN^S DISEASE
     Dosage: DAYS 1 AND 15 OF EACH 28 DAY CYCLE FOR UPTO 6 CYCLES OF THERAPY
     Route: 042
  5. VINBLASTINE [Suspect]
     Active Substance: VINBLASTINE
     Indication: HODGKIN^S DISEASE
     Dosage: DAYS 1 AND 15 OF EACH 28 DAY CYCLE FOR UPTO 6 CYCLES OF THERAPY
     Route: 065

REACTIONS (2)
  - Hyponatraemia [Fatal]
  - Pulmonary toxicity [Fatal]
